FAERS Safety Report 22629089 (Version 1)
Quarter: 2023Q2

REPORT INFORMATION
  Report Type: Spontaneous
  Country: US (occurrence: US)
  Receive Date: 20230622
  Receipt Date: 20230622
  Transmission Date: 20230722
  Serious: Yes (Other)
  Sender: FDA-Public Use
  Company Number: US-PFIZER INC-PV202300107219

PATIENT
  Age: 24 Year
  Sex: Male

DRUGS (1)
  1. HEPARIN SODIUM [Suspect]
     Active Substance: HEPARIN SODIUM
     Indication: Portal vein thrombosis
     Dosage: DRIP

REACTIONS (2)
  - Melaena [Unknown]
  - Post procedural haemorrhage [Recovered/Resolved]
